FAERS Safety Report 9471253 (Version 1)
Quarter: 2013Q3

REPORT INFORMATION
  Report Type: Spontaneous
  Country: US (occurrence: None)
  Receive Date: 20130816
  Receipt Date: 20130816
  Transmission Date: 20140515
  Serious: Yes (Other)
  Sender: FDA-Public Use
  Company Number: 1844494

PATIENT
  Age: 64 Year
  Sex: Female
  Weight: 88 kg

DRUGS (5)
  1. PROPOFOL [Suspect]
     Indication: INDUCTION OF ANAESTHESIA
  2. RIFAMPIN [Suspect]
     Indication: INFECTION PROPHYLAXIS
     Route: 048
  3. FENTANYL [Concomitant]
  4. MIDAZOLAM [Concomitant]
  5. SUCCINYLCHOLINE [Concomitant]

REACTIONS (3)
  - Heart rate increased [None]
  - Drug interaction [None]
  - Hypotension [None]
